FAERS Safety Report 6667188-3 (Version None)
Quarter: 2010Q2

REPORT INFORMATION
  Report Type: 
  Country: None (occurrence: None)
  Receive Date: 20100405
  Receipt Date: 20100329
  Transmission Date: 20101027
  Serious: Yes (Disabling)
  Sender: FDA-Public Use
  Company Number: JP-EISAI INC.-E2090-01128-SPO-JP

PATIENT
  Sex: Male

DRUGS (16)
  1. ZONISAMIDE [Suspect]
     Indication: PARKINSON'S DISEASE
     Route: 048
     Dates: start: 20100219, end: 20100302
  2. FUROSEMIDE [Concomitant]
  3. NORVASC [Concomitant]
  4. TANATRIL [Concomitant]
  5. REQUIP [Concomitant]
  6. PANTOSIN [Concomitant]
  7. MAGNESIUM OXIDE [Concomitant]
  8. MUCOSTA [Concomitant]
  9. LANSOPRAZOLE [Concomitant]
  10. MYSLEE [Concomitant]
  11. LENDORMIN [Concomitant]
  12. ALLOID G [Concomitant]
  13. FE OD [Concomitant]
  14. DYDRENE TAPE [Concomitant]
  15. BIOFERMINE [Concomitant]
  16. MADOPAR [Concomitant]

REACTIONS (2)
  - ATRIOVENTRICULAR BLOCK [None]
  - BRADYCARDIA [None]
